FAERS Safety Report 10437831 (Version 1)
Quarter: 2014Q3

REPORT INFORMATION
  Report Type: Spontaneous
  Country: US (occurrence: US)
  Receive Date: 20140908
  Receipt Date: 20140908
  Transmission Date: 20150326
  Serious: No
  Sender: FDA-Public Use
  Company Number: US-BRISTOL-MYERS SQUIBB COMPANY-20513776

PATIENT
  Age: 3 Decade
  Sex: Male

DRUGS (6)
  1. ATENOLOL. [Concomitant]
     Active Substance: ATENOLOL
     Dosage: TABS?MORNING
  2. ABILIFY [Suspect]
     Active Substance: ARIPIPRAZOLE
     Dosage: TABS
  3. CONCERTA [Concomitant]
     Active Substance: METHYLPHENIDATE HYDROCHLORIDE
     Dosage: 2TABS IN MORNING + EVENING
  4. BENZATROPINE [Concomitant]
     Active Substance: BENZTROPINE
     Dosage: TABS
  5. LAMOTRIGINE. [Concomitant]
     Active Substance: LAMOTRIGINE
     Dosage: TABS AT NIGHT
  6. OXCARBAZEPINE. [Concomitant]
     Active Substance: OXCARBAZEPINE
     Dosage: 3 TABS AT NIGHT

REACTIONS (1)
  - Tardive dyskinesia [Unknown]
